FAERS Safety Report 18085923 (Version 1)
Quarter: 2020Q3

REPORT INFORMATION
  Report Type: Spontaneous
  Country: US (occurrence: US)
  Receive Date: 20200728
  Receipt Date: 20200728
  Transmission Date: 20201103
  Serious: No
  Sender: FDA-Public Use
  Company Number: None

PATIENT
  Sex: Male

DRUGS (1)
  1. SILDENAFIL. [Suspect]
     Active Substance: SILDENAFIL
     Dosage: ?          OTHER FREQUENCY:THREE TIMES A DAY;?
     Route: 048
     Dates: start: 20200501

REACTIONS (1)
  - Hospitalisation [None]
